FAERS Safety Report 26200290 (Version 1)
Quarter: 2025Q4

REPORT INFORMATION
  Report Type: Spontaneous
  Country: EU (occurrence: EU)
  Receive Date: 20251225
  Receipt Date: 20251225
  Transmission Date: 20260118
  Serious: Yes (Other)
  Sender: ALEXION PHARMACEUTICALS
  Company Number: EU-AstraZeneca-CH-00999779A

PATIENT
  Age: 63 Year
  Sex: Female

DRUGS (1)
  1. IMFINZI [Suspect]
     Active Substance: DURVALUMAB
     Dosage: 1500 MILLIGRAM, Q4W
     Route: 065

REACTIONS (5)
  - Hypothyroidism [Unknown]
  - Brain oedema [Unknown]
  - Dyspnoea [Unknown]
  - Headache [Unknown]
  - Oedema [Unknown]
